FAERS Safety Report 17082471 (Version 1)
Quarter: 2019Q4

REPORT INFORMATION
  Report Type: Spontaneous
  Country: US (occurrence: US)
  Receive Date: 20191127
  Receipt Date: 20191127
  Transmission Date: 20200122
  Serious: No
  Sender: FDA-Public Use
  Company Number: US-PFIZER INC-2019512863

PATIENT
  Age: 61 Year
  Sex: Male
  Weight: 63.5 kg

DRUGS (4)
  1. HUMIRA [Suspect]
     Active Substance: ADALIMUMAB
     Dosage: UNK
     Route: 058
     Dates: end: 2017
  2. IBUPROFEN. [Concomitant]
     Active Substance: IBUPROFEN
     Dosage: 400 MG, 1X/DAY (200 MG, 2 OF THEM ONCE A DAY)
     Dates: start: 2017
  3. XELJANZ XR [Suspect]
     Active Substance: TOFACITINIB CITRATE
     Indication: RHEUMATOID ARTHRITIS
     Dosage: 11 MG, 1X/DAY
     Route: 048
  4. NAPROXEN. [Concomitant]
     Active Substance: NAPROXEN
     Dosage: 440 MG, 1X/DAY (220 MG, 2 AT A TIME MOSTLY ONE TIME A DAY, ALMOST EVERY DAY)
     Dates: start: 2017

REACTIONS (5)
  - Swelling face [Unknown]
  - Condition aggravated [Not Recovered/Not Resolved]
  - Swelling [Unknown]
  - Pruritus [Unknown]
  - Urticaria [Recovered/Resolved]

NARRATIVE: CASE EVENT DATE: 2018
